FAERS Safety Report 18353942 (Version 7)
Quarter: 2021Q3

REPORT INFORMATION
  Report Type: Report from Study
  Country: DE (occurrence: DE)
  Receive Date: 20201006
  Receipt Date: 20210730
  Transmission Date: 20211014
  Serious: Yes (Life-Threatening, Hospitalization)
  Sender: FDA-Public Use
  Company Number: DE-BRISTOL-MYERS SQUIBB COMPANY-BMS-2020-078358

PATIENT
  Age: 54 Year
  Sex: Male
  Weight: 80 kg

DRUGS (10)
  1. CARFILZOMIB [Suspect]
     Active Substance: CARFILZOMIB
     Indication: PLASMA CELL MYELOMA
     Dosage: 40 MILLIGRAMS / DAY (20 MILLIGRAMS/M2 , 1 TIME IN 1 DAY)
     Route: 042
     Dates: start: 20200827, end: 20200828
  2. CARFILZOMIB [Suspect]
     Active Substance: CARFILZOMIB
     Dosage: 72 MILLIGRAMS / DAY (36 MILLIGRAMS/M2, 2 TIMES IN 1 WEEK)
     Route: 042
     Dates: start: 20200903, end: 20200911
  3. DEXAMETHASONE. [Suspect]
     Active Substance: DEXAMETHASONE
     Dosage: 8 MILLIGRAM, QD
     Route: 042
     Dates: start: 20201006
  4. CARFILZOMIB [Suspect]
     Active Substance: CARFILZOMIB
     Dosage: 72 MILLIGRAMS / DAY (36 MILLIGRAMS/M2 , 1 TIME IN 1 DAY)
     Route: 042
     Dates: start: 20201006, end: 20201007
  5. COTRIM FORTE [Concomitant]
     Active Substance: SULFAMETHOXAZOLE\TRIMETHOPRIM
     Indication: INFECTION PROPHYLAXIS
     Dosage: 960 MILLIGRAM, QD
     Route: 048
     Dates: start: 20200812, end: 20200917
  6. ELOTUZUMAB. [Suspect]
     Active Substance: ELOTUZUMAB
     Indication: PLASMA CELL MYELOMA
     Dosage: 800 MILLIGRAMS / DAY (10 MILLIGRAMS/KG, 1 TIME IN 1 WEEK)
     Route: 042
     Dates: start: 20200827, end: 20200917
  7. DEXAMETHASONE. [Suspect]
     Active Substance: DEXAMETHASONE
     Dosage: 28 MILLIGRAM, QD
     Route: 048
     Dates: start: 20201006
  8. LENALIDOMIDE [Suspect]
     Active Substance: LENALIDOMIDE
     Indication: PLASMA CELL MYELOMA
     Dosage: 25 MILLIGRAM, QD
     Route: 048
     Dates: start: 20200827, end: 20200920
  9. DEXAMETHASONE. [Suspect]
     Active Substance: DEXAMETHASONE
     Indication: PLASMA CELL MYELOMA
     Dosage: 8 MILLIGRAMS / DAY (8 MILLIGRAMS, 1 TIME IN 1 WEEK)
     Route: 042
     Dates: start: 20200827, end: 20200917
  10. DEXAMETHASONE. [Suspect]
     Active Substance: DEXAMETHASONE
     Indication: PLASMA CELL MYELOMA
     Dosage: 28 MILLIGRAMS / DAY (28 MILLIGRAMS, 1 TIME IN 1 WEEK)
     Route: 048
     Dates: start: 20200827, end: 20200917

REACTIONS (1)
  - Skin toxicity [Recovered/Resolved]

NARRATIVE: CASE EVENT DATE: 20200920
